FAERS Safety Report 4395278-7 (Version None)
Quarter: 2004Q3

REPORT INFORMATION
  Report Type: 
  Country: None (occurrence: None)
  Receive Date: 20040706
  Receipt Date: 20040622
  Transmission Date: 20050211
  Serious: Yes (Hospitalization)
  Sender: FDA-Public Use
  Company Number: 04P-056-0256923-00

PATIENT
  Age: 41 Year
  Sex: Female

DRUGS (4)
  1. DEPAKOTE [Suspect]
     Indication: BIPOLAR DISORDER
     Dosage: 500 MG, 2 IN 1 D, ORAL
     Route: 048
  2. CLONAZEPAM [Concomitant]
  3. ANTIDEPRESSOR ANTISEROTONINERGIC [Concomitant]
  4. LORAZEPAM [Concomitant]

REACTIONS (6)
  - AGITATION [None]
  - CIRCADIAN RHYTHM SLEEP DISORDER [None]
  - CONFUSIONAL STATE [None]
  - DISSOCIATION [None]
  - PARADOXICAL DRUG REACTION [None]
  - STUPOR [None]
